FAERS Safety Report 11133045 (Version 2)
Quarter: 2015Q3

REPORT INFORMATION
  Report Type: Spontaneous
  Country: US (occurrence: US)
  Receive Date: 20150522
  Receipt Date: 20150701
  Transmission Date: 20151125
  Serious: Yes (Other)
  Sender: FDA-Public Use
  Company Number: US-ASTRAZENECA-2015SE47240

PATIENT
  Sex: Female

DRUGS (2)
  1. SYMBICORT [Suspect]
     Active Substance: BUDESONIDE\FORMOTEROL FUMARATE DIHYDRATE
     Indication: ASTHMA
     Dosage: 160/4.5 UG, 2 PUFFS BID
     Route: 055
  2. SYMBICORT [Suspect]
     Active Substance: BUDESONIDE\FORMOTEROL FUMARATE DIHYDRATE
     Indication: ASTHMA
     Dosage: 160/4.5 UG, 2 PUFFS BID
     Route: 055
     Dates: start: 20150510

REACTIONS (5)
  - Asthma [Unknown]
  - Drug dose omission [Unknown]
  - Product quality issue [Unknown]
  - Pulmonary pain [Unknown]
  - Back pain [Unknown]

NARRATIVE: CASE EVENT DATE: 20150514
